FAERS Safety Report 13871752 (Version 1)
Quarter: 2017Q3

REPORT INFORMATION
  Report Type: Spontaneous
  Country: US (occurrence: US)
  Receive Date: 20170816
  Receipt Date: 20170816
  Transmission Date: 20171127
  Serious: No
  Sender: FDA-Public Use
  Company Number: US-ELI_LILLY_AND_COMPANY-US201708004498

PATIENT
  Age: 80 Year
  Sex: Female

DRUGS (1)
  1. FORTEO [Suspect]
     Active Substance: TERIPARATIDE
     Indication: OSTEOPOROSIS
     Dosage: UNK

REACTIONS (4)
  - Lacrimation increased [Unknown]
  - Hypoacusis [Not Recovered/Not Resolved]
  - Headache [Unknown]
  - Product storage error [Unknown]

NARRATIVE: CASE EVENT DATE: 20170807
